FAERS Safety Report 13777969 (Version 3)
Quarter: 2017Q3

REPORT INFORMATION
  Report Type: Spontaneous
  Country: JP (occurrence: JP)
  Receive Date: 20170721
  Receipt Date: 20170802
  Transmission Date: 20171127
  Serious: Yes (Death, Life-Threatening)
  Sender: FDA-Public Use
  Company Number: JP-PFIZER INC-2017315009

PATIENT
  Age: 51 Year
  Sex: Male
  Weight: 63.8 kg

DRUGS (4)
  1. GEMCITABINE HYDROCHLORIDE. [Suspect]
     Active Substance: GEMCITABINE HYDROCHLORIDE
     Dosage: UNK, CYCLIC, (1,700 MG (1,000 MG/M2))
     Dates: start: 20031005
  2. GEMCITABINE HYDROCHLORIDE. [Suspect]
     Active Substance: GEMCITABINE HYDROCHLORIDE
     Dosage: UNK, CYCLIC, (1,300MG (800MG/M2) DAY 1 OF THE SECOND COURSE)
     Dates: start: 20031107
  3. CARBOPLATIN. [Concomitant]
     Active Substance: CARBOPLATIN
     Indication: LUNG ADENOCARCINOMA STAGE III
     Dosage: 400 MG, CYCLIC (AUC =4)
     Dates: start: 20031005
  4. GEMCITABINE HYDROCHLORIDE. [Suspect]
     Active Substance: GEMCITABINE HYDROCHLORIDE
     Indication: LUNG ADENOCARCINOMA STAGE III
     Dosage: UNK, CYCLIC, (AS DAY 1 OF THE FIRST COURSE OF GEM 1,700 MG (1,000 MG/M2))
     Dates: start: 20030926

REACTIONS (2)
  - Traumatic lung injury [Fatal]
  - Pulmonary alveolar haemorrhage [Fatal]
